FAERS Safety Report 8062900-3 (Version None)
Quarter: 2012Q1

REPORT INFORMATION
  Report Type: 
  Country: None (occurrence: None)
  Receive Date: 20120123
  Receipt Date: 20120123
  Transmission Date: 20120608
  Serious: Yes (Other)
  Sender: FDA-Public Use
  Company Number: None

PATIENT
  Sex: Male

DRUGS (10)
  1. LEVOTHYROXINE SODIUM [Concomitant]
     Route: 048
  2. IBUPROFEN [Concomitant]
     Route: 048
  3. ATENOLOL [Concomitant]
  4. FLOMAX [Concomitant]
  5. PRILOSEC [Suspect]
     Route: 048
  6. NEXIUM [Suspect]
     Indication: GASTROOESOPHAGEAL REFLUX DISEASE
     Dates: start: 19980601, end: 20100801
  7. PROTONIX [Suspect]
  8. NUTRITIONAL SUPPLEMENTS [Concomitant]
     Route: 048
  9. OMEPRAZOLE [Concomitant]
  10. HYDROXYZINE HCL [Concomitant]
     Route: 048

REACTIONS (5)
  - DENTAL CARIES [None]
  - BONE LOSS [None]
  - NEPHROLITHIASIS [None]
  - INHIBITORY DRUG INTERACTION [None]
  - OSTEOPENIA [None]
